FAERS Safety Report 23202035 (Version 1)
Quarter: 2023Q4

REPORT INFORMATION
  Report Type: Spontaneous
  Country: US (occurrence: US)
  Receive Date: 20231120
  Receipt Date: 20231120
  Transmission Date: 20240109
  Serious: No
  Sender: FDA-Public Use
  Company Number: US-BoehringerIngelheim-2023-BI-273266

PATIENT

DRUGS (2)
  1. MELOXICAM [Suspect]
     Active Substance: MELOXICAM
     Indication: Product used for unknown indication
  2. ZYNRELEF [Concomitant]
     Active Substance: BUPIVACAINE\MELOXICAM
     Indication: Product used for unknown indication

REACTIONS (1)
  - Drug ineffective [Unknown]
